FAERS Safety Report 22339300 (Version 1)
Quarter: 2023Q2

REPORT INFORMATION
  Report Type: Spontaneous
  Country: CA (occurrence: CA)
  Receive Date: 20230518
  Receipt Date: 20230518
  Transmission Date: 20230721
  Serious: Yes (Other)
  Sender: FDA-Public Use
  Company Number: CA-TEVA-2023-CA-2886632

PATIENT
  Age: 50 Year
  Sex: Female

DRUGS (1)
  1. CARBAMAZEPINE [Suspect]
     Active Substance: CARBAMAZEPINE
     Indication: Seizure
     Dosage: 600 MILLIGRAM DAILY;
     Route: 048

REACTIONS (5)
  - Fall [Unknown]
  - Loss of consciousness [Unknown]
  - Posture abnormal [Unknown]
  - Urinary incontinence [Unknown]
  - Drug ineffective [Unknown]
